FAERS Safety Report 26010176 (Version 1)
Quarter: 2025Q4

REPORT INFORMATION
  Report Type: Report from Study
  Country: US (occurrence: US)
  Receive Date: 20251107
  Receipt Date: 20251107
  Transmission Date: 20260117
  Serious: Yes (Other)
  Sender: ALEXION PHARMACEUTICALS
  Company Number: 202510NAM015212US

PATIENT
  Age: 55 Year
  Sex: Male

DRUGS (1)
  1. STRENSIQ [Suspect]
     Active Substance: ASFOTASE ALFA
     Indication: Phosphorus metabolism disorder
     Dosage: 2 MILLIGRAM/KILOGRAM, TIW
     Route: 065

REACTIONS (11)
  - Depression suicidal [Unknown]
  - Influenza like illness [Unknown]
  - Pain [Unknown]
  - Dyspnoea exertional [Unknown]
  - Respiratory disorder [Unknown]
  - Abnormal loss of weight [Unknown]
  - Initial insomnia [Unknown]
  - Fatigue [Unknown]
  - Depression [Unknown]
  - Stress [Unknown]
  - Irritability [Unknown]
